FAERS Safety Report 13735004 (Version 3)
Quarter: 2017Q3

REPORT INFORMATION
  Report Type: Report from Study
  Country: US (occurrence: US)
  Receive Date: 20170710
  Receipt Date: 20170802
  Transmission Date: 20171127
  Serious: Yes (Death, Hospitalization)
  Sender: FDA-Public Use
  Company Number: US-ROCHE-1959221

PATIENT
  Age: 57 Year
  Sex: Female

DRUGS (4)
  1. ATEZOLIZUMAB. [Suspect]
     Active Substance: ATEZOLIZUMAB
     Indication: METASTATIC SQUAMOUS CELL CARCINOMA
  2. BEVACIZUMAB. [Suspect]
     Active Substance: BEVACIZUMAB
     Indication: METASTATIC SQUAMOUS CELL CARCINOMA
  3. BEVACIZUMAB. [Suspect]
     Active Substance: BEVACIZUMAB
     Indication: NEOPLASM
     Dosage: DATE OF LAST DOSE PRIOR TO AE ONSET - 21/JUN/2017, 825MG
     Route: 042
     Dates: end: 20170710
  4. ATEZOLIZUMAB. [Suspect]
     Active Substance: ATEZOLIZUMAB
     Indication: NEOPLASM
     Dosage: DATE OF LAST DOSE PRIOR TO AE ONSET - 21/JUN/2017, 1200MG
     Route: 042
     Dates: end: 20170710

REACTIONS (5)
  - Infection [Unknown]
  - Gastrointestinal fistula [Unknown]
  - Gastrointestinal disorder [Fatal]
  - Gastrointestinal disorder [Unknown]
  - Sepsis [Recovered/Resolved]

NARRATIVE: CASE EVENT DATE: 20170629
